FAERS Safety Report 4773118-1 (Version None)
Quarter: 2005Q3

REPORT INFORMATION
  Report Type: 
  Country: None (occurrence: None)
  Receive Date: 20050915
  Receipt Date: 20050915
  Transmission Date: 20060218
  Serious: Yes (Hospitalization)
  Sender: FDA-Public Use
  Company Number: None

PATIENT
  Age: 57 Year
  Weight: 98.2 kg

DRUGS (11)
  1. GEMFIBROZIL [Suspect]
     Indication: HYPERLIPIDAEMIA
     Dosage: 600MG   QDAY   PO
     Route: 048
     Dates: start: 20050601, end: 20050815
  2. SIMVASTATIN [Suspect]
     Indication: HYPERLIPIDAEMIA
     Dosage: 80MG  QDAY   PO
     Route: 048
     Dates: start: 20000425, end: 20050815
  3. CALCIUM ACETATE [Concomitant]
  4. METOCLOPRAMIDE HCL [Concomitant]
  5. SODIUM BICARBONATE [Concomitant]
  6. ACCU-CHEK COMFORT CV-GLUCOSE- TEST STRIP [Concomitant]
  7. INSULIN SYRINGE [Concomitant]
  8. SYNTHROID [Concomitant]
  9. GLIMEPIRIDE [Concomitant]
  10. DOCUSATE NA [Concomitant]
  11. INSULIN NOVOLIN 70/30 -NPH/REG- [Concomitant]

REACTIONS (4)
  - BRADYCARDIA [None]
  - HYPERKALAEMIA [None]
  - HYPOXIA [None]
  - RHABDOMYOLYSIS [None]
